FAERS Safety Report 10852425 (Version 1)
Quarter: 2015Q1

REPORT INFORMATION
  Report Type: Spontaneous
  Country: US (occurrence: US)
  Receive Date: 20150222
  Receipt Date: 20150222
  Transmission Date: 20150721
  Serious: No
  Sender: FDA-Public Use
  Company Number: US-ALLERGAN-1425609US

PATIENT
  Age: 28 Year
  Sex: Female

DRUGS (3)
  1. BENZODIAZEPINES [Concomitant]
     Active Substance: BENZODIAZEPINE
  2. BOTOX [Suspect]
     Active Substance: ONABOTULINUMTOXINA
     Indication: BLADDER DISORDER
     Dosage: UNK
     Dates: start: 20140704, end: 20140704
  3. BOTOX [Suspect]
     Active Substance: ONABOTULINUMTOXINA
     Indication: MIGRAINE
     Dosage: 150 UNITS, SINGLE
     Dates: start: 20141201, end: 20141201

REACTIONS (2)
  - Eyelid ptosis [Unknown]
  - VIIth nerve paralysis [Unknown]

NARRATIVE: CASE EVENT DATE: 20140704
